FAERS Safety Report 16318161 (Version 2)
Quarter: 2019Q2

REPORT INFORMATION
  Report Type: Spontaneous
  Country: JP (occurrence: JP)
  Receive Date: 20190516
  Receipt Date: 20190531
  Transmission Date: 20190711
  Serious: Yes (Other)
  Sender: FDA-Public Use
  Company Number: JP-ROCHE-2319576

PATIENT
  Age: 63 Year
  Sex: Female
  Weight: 46 kg

DRUGS (20)
  1. AMITIZA [Concomitant]
     Active Substance: LUBIPROSTONE
     Indication: CONSTIPATION
     Route: 048
  2. POLAPREZINC [Concomitant]
     Active Substance: POLAPREZINC
     Indication: CHRONIC GASTRITIS
     Route: 048
  3. AMITIZA [Concomitant]
     Active Substance: LUBIPROSTONE
     Indication: OFF LABEL USE
  4. XELODA [Suspect]
     Active Substance: CAPECITABINE
     Indication: NEUROENDOCRINE TUMOUR
     Route: 048
     Dates: start: 20161026, end: 20170212
  5. TEMODAL [Suspect]
     Active Substance: TEMOZOLOMIDE
     Indication: OFF LABEL USE
  6. ESOMEPRAZOLE. [Concomitant]
     Active Substance: ESOMEPRAZOLE MAGNESIUM
     Indication: GASTROOESOPHAGEAL REFLUX DISEASE
     Route: 048
  7. ESOMEPRAZOLE. [Concomitant]
     Active Substance: ESOMEPRAZOLE MAGNESIUM
     Indication: OFF LABEL USE
  8. CALONAL [Concomitant]
     Active Substance: ACETAMINOPHEN
     Indication: OFF LABEL USE
  9. TEMODAR [Concomitant]
     Active Substance: TEMOZOLOMIDE
     Indication: NEUROENDOCRINE TUMOUR
     Dosage: DOSAGE IS UNCERTAIN.
     Route: 065
  10. AMLODIPINE [Concomitant]
     Active Substance: AMLODIPINE BESYLATE
     Indication: OFF LABEL USE
  11. CORTRIL [Suspect]
     Active Substance: HYDROCORTISONE
     Indication: OFF LABEL USE
  12. AMLODIPINE [Concomitant]
     Active Substance: AMLODIPINE BESYLATE
     Indication: HYPERTENSION
     Route: 048
  13. URSODEOXYCHOLIC ACID [Concomitant]
     Active Substance: URSODIOL
     Indication: OFF LABEL USE
  14. TEMODAR [Concomitant]
     Active Substance: TEMOZOLOMIDE
     Indication: OFF LABEL USE
  15. XELODA [Suspect]
     Active Substance: CAPECITABINE
     Indication: OFF LABEL USE
  16. CORTRIL [Suspect]
     Active Substance: HYDROCORTISONE
     Indication: ADRENAL INSUFFICIENCY
     Dosage: MORNING: 3 TABLETS, EVENING: 1 TABLET
     Route: 048
  17. URSODEOXYCHOLIC ACID [Concomitant]
     Active Substance: URSODIOL
     Indication: LIVER DISORDER
     Route: 048
  18. POLAPREZINC [Concomitant]
     Active Substance: POLAPREZINC
     Indication: OFF LABEL USE
  19. TEMODAL [Suspect]
     Active Substance: TEMOZOLOMIDE
     Indication: PANCREATIC NEUROENDOCRINE TUMOUR
     Dosage: DOSE INTERVAL UNCERTAINTY
     Route: 048
     Dates: start: 20161026, end: 20170118
  20. CALONAL [Concomitant]
     Active Substance: ACETAMINOPHEN
     Indication: CANCER PAIN
     Route: 048

REACTIONS (3)
  - Meningitis cryptococcal [Recovering/Resolving]
  - Bone marrow failure [Unknown]
  - Off label use [Unknown]

NARRATIVE: CASE EVENT DATE: 20170220
